FAERS Safety Report 25660175 (Version 1)
Quarter: 2025Q3

REPORT INFORMATION
  Report Type: Spontaneous
  Country: US (occurrence: US)
  Receive Date: 20250808
  Receipt Date: 20250808
  Transmission Date: 20251021
  Serious: Yes (Hospitalization)
  Sender: ALEXION PHARMACEUTICALS
  Company Number: US-AstraZeneca-CH-00926145A

PATIENT
  Sex: Female

DRUGS (1)
  1. DALIRESP [Suspect]
     Active Substance: ROFLUMILAST
     Dosage: 250 MICROGRAM, QD
     Route: 065

REACTIONS (4)
  - Lung disorder [Unknown]
  - Myocardial infarction [Unknown]
  - Product use issue [Unknown]
  - Confusional state [Unknown]
